FAERS Safety Report 6844673-2 (Version None)
Quarter: 2010Q3

REPORT INFORMATION
  Report Type: 
  Country: None (occurrence: None)
  Receive Date: 20100715
  Receipt Date: 20100706
  Transmission Date: 20110219
  Serious: Yes (Other)
  Sender: FDA-Public Use
  Company Number: SK-NOVOPROD-310798

PATIENT
  Sex: Male
  Weight: 94 kg

DRUGS (2)
  1. INSULATARD PENFILL [Suspect]
     Indication: TYPE 2 DIABETES MELLITUS
     Dosage: 22 IU, QD
     Route: 058
     Dates: start: 20100114, end: 20100622
  2. ACTRAPID PENFILL [Concomitant]
     Indication: TYPE 2 DIABETES MELLITUS
     Dosage: 82 IU, QD
     Route: 058
     Dates: start: 20100114

REACTIONS (2)
  - TREMOR [None]
  - URTICARIA [None]
